FAERS Safety Report 6211120-3 (Version None)
Quarter: 2009Q2

REPORT INFORMATION
  Report Type: 
  Country: None (occurrence: None)
  Receive Date: 20090528
  Receipt Date: 20090518
  Transmission Date: 20091009
  Serious: Yes (Hospitalization, Other)
  Sender: FDA-Public Use
  Company Number: 2009AP001807

PATIENT
  Age: 44 Year
  Sex: Female

DRUGS (6)
  1. DILTIAZEM HCL [Suspect]
  2. ENALAPRIL MALEATE [Suspect]
  3. CLOZAPINE [Suspect]
     Dosage: 725 MG; QD; 25 MG; QD; 300 MG; QD; 900 MG; QD
  4. CLONIDINE [Suspect]
  5. HYDROXYZINE [Suspect]
  6. PSYLLIUM [Concomitant]

REACTIONS (4)
  - ABDOMINAL SEPSIS [None]
  - FATIGUE [None]
  - INTESTINAL OBSTRUCTION [None]
  - MENTAL STATUS CHANGES [None]
